FAERS Safety Report 5060185-3 (Version None)
Quarter: 2006Q3

REPORT INFORMATION
  Report Type: 
  Country: None (occurrence: None)
  Receive Date: 20060718
  Receipt Date: 20060630
  Transmission Date: 20061208
  Serious: Yes (Other)
  Sender: FDA-Public Use
  Company Number: GB200606006234

PATIENT
  Age: 13 Year
  Sex: Male
  Weight: 35 kg

DRUGS (3)
  1. STRATTERA [Suspect]
     Indication: ATTENTION DEFICIT/HYPERACTIVITY DISORDER
     Dosage: 25 MG
  2. METHYLPHENIDATE HCL [Concomitant]
  3. CLONIDINE [Concomitant]

REACTIONS (3)
  - AGGRESSION [None]
  - HOMICIDAL IDEATION [None]
  - PSYCHIATRIC SYMPTOM [None]
